FAERS Safety Report 13505312 (Version 3)
Quarter: 2017Q2

REPORT INFORMATION
  Report Type: Spontaneous
  Country: US (occurrence: US)
  Receive Date: 20170502
  Receipt Date: 20170607
  Transmission Date: 20170830
  Serious: No
  Sender: FDA-Public Use
  Company Number: US-GLAXOSMITHKLINE-US2017GSK063502

PATIENT
  Sex: Female

DRUGS (2)
  1. TANZEUM [Suspect]
     Active Substance: ALBIGLUTIDE
     Indication: DIABETES MELLITUS
     Dosage: 50 MG, U
     Route: 042
     Dates: start: 20170406
  2. TANZEUM [Suspect]
     Active Substance: ALBIGLUTIDE
     Dosage: 50 MG, U
     Route: 042

REACTIONS (5)
  - Poor quality drug administered [Unknown]
  - Injection site irritation [Unknown]
  - Injection site erythema [Unknown]
  - Product quality issue [Unknown]
  - Liquid product physical issue [Unknown]
